FAERS Safety Report 22777042 (Version 4)
Quarter: 2024Q1

REPORT INFORMATION
  Report Type: Spontaneous
  Country: US (occurrence: US)
  Receive Date: 20230802
  Receipt Date: 20240130
  Transmission Date: 20240410
  Serious: No
  Sender: FDA-Public Use
  Company Number: US-SA-SAC20230801000146

PATIENT
  Age: 58 Year
  Sex: Female

DRUGS (2)
  1. DUPIXENT [Suspect]
     Active Substance: DUPILUMAB
     Indication: Asthma
     Dosage: 600 MG, 1X
     Route: 058
     Dates: start: 202306, end: 202306
  2. DUPIXENT [Suspect]
     Active Substance: DUPILUMAB
     Dosage: 300 MG, QOW
     Route: 058
     Dates: start: 2023

REACTIONS (6)
  - Influenza [Unknown]
  - Pruritus [Unknown]
  - Eyelids pruritus [Unknown]
  - Hypersensitivity [Unknown]
  - Arthralgia [Unknown]
  - Eye pruritus [Unknown]

NARRATIVE: CASE EVENT DATE: 20230101
